FAERS Safety Report 20029709 (Version 1)
Quarter: 2021Q4

REPORT INFORMATION
  Report Type: Spontaneous
  Country: JP (occurrence: JP)
  Receive Date: 20211103
  Receipt Date: 20211103
  Transmission Date: 20220303
  Serious: Yes (Other)
  Sender: FDA-Public Use
  Company Number: JP-OTSUKA-2021_037554

PATIENT
  Age: 27 Year
  Sex: Female

DRUGS (2)
  1. ABILIFY [Suspect]
     Active Substance: ARIPIPRAZOLE
     Indication: Schizophrenia
     Dosage: UNK
     Route: 030
  2. BLONANSERIN [Concomitant]
     Active Substance: BLONANSERIN
     Indication: Schizophrenia
     Dosage: UNK
     Route: 065

REACTIONS (3)
  - Hallucination, auditory [Unknown]
  - Persecutory delusion [Unknown]
  - Maternal exposure during pregnancy [Unknown]
